FAERS Safety Report 15569558 (Version 4)
Quarter: 2019Q1

REPORT INFORMATION
  Report Type: Spontaneous
  Country: US (occurrence: US)
  Receive Date: 20181031
  Receipt Date: 20190129
  Transmission Date: 20190417
  Serious: Yes (Hospitalization, Other)
  Sender: FDA-Public Use
  Company Number: US-AMGEN-USASP2018151209

PATIENT
  Age: 84 Year
  Sex: Male
  Weight: 104 kg

DRUGS (13)
  1. PARSABIV [Suspect]
     Active Substance: ETELCALCETIDE HYDROCHLORIDE
     Indication: HYPERPARATHYROIDISM SECONDARY
     Dosage: 5 MG, 3 TIMES/WK
     Route: 065
     Dates: start: 2018, end: 2018
  2. AURYXIA [Concomitant]
     Active Substance: TETRAFERRIC TRICITRATE DECAHYDRATE
     Indication: IRON DEFICIENCY
     Dosage: UNK UNK, BID
     Dates: start: 201811
  3. HEPARIN [Concomitant]
     Active Substance: HEPARIN SODIUM
     Indication: BLOOD DISORDER
     Dosage: 2500 UNK, UNK
     Dates: start: 20180707
  4. MIDODRINE [Concomitant]
     Active Substance: MIDODRINE
     Indication: HYPOTENSION
     Dosage: 10 MG, TID
     Dates: start: 201802
  5. PARSABIV [Suspect]
     Active Substance: ETELCALCETIDE HYDROCHLORIDE
     Indication: CHRONIC KIDNEY DISEASE
     Dosage: 2.5 MG, 3 TIMES/WK
     Route: 065
     Dates: start: 20180730, end: 20181107
  6. WARFARIN [Concomitant]
     Active Substance: WARFARIN
     Indication: HAEMORRHOIDS
     Dosage: 4 MG, QD
  7. CIALIS [Concomitant]
     Active Substance: TADALAFIL
     Indication: HAEMORRHOIDS
     Dosage: UNK
  8. COUMADIN [Concomitant]
     Active Substance: WARFARIN SODIUM
     Dosage: UNK
     Dates: start: 2006
  9. METOPROLOL SUCCINATE. [Concomitant]
     Active Substance: METOPROLOL SUCCINATE
     Dosage: 50 MG, UNK
  10. SENSIPAR [Suspect]
     Active Substance: CINACALCET HYDROCHLORIDE
     Indication: CHRONIC KIDNEY DISEASE
     Dosage: 30 MG, QD
     Route: 065
     Dates: start: 201710, end: 2017
  11. PARSABIV [Suspect]
     Active Substance: ETELCALCETIDE HYDROCHLORIDE
     Dosage: 2.5 MG, 3 TIMES/WK
     Route: 065
     Dates: start: 2018, end: 2018
  12. SENSIPAR [Suspect]
     Active Substance: CINACALCET HYDROCHLORIDE
     Indication: HYPERPARATHYROIDISM SECONDARY
  13. FOSRENOL [Concomitant]
     Active Substance: LANTHANUM CARBONATE
     Indication: BLOOD POTASSIUM INCREASED
     Dosage: UNK
     Dates: start: 2013, end: 2018

REACTIONS (20)
  - Drug ineffective [Unknown]
  - Underdose [Unknown]
  - Tremor [Recovering/Resolving]
  - Asthenia [Not Recovered/Not Resolved]
  - Musculoskeletal discomfort [Recovering/Resolving]
  - Fatigue [Recovering/Resolving]
  - Rash [Unknown]
  - Pleural effusion [Unknown]
  - Malaise [Unknown]
  - Nervous system disorder [Not Recovered/Not Resolved]
  - Feeling abnormal [Recovered/Resolved]
  - Discomfort [Unknown]
  - Somnolence [Recovered/Resolved]
  - Blood parathyroid hormone increased [Unknown]
  - Dialysis related complication [Unknown]
  - Arthritis [Unknown]
  - Iron deficiency [Unknown]
  - Blood pressure abnormal [Not Recovered/Not Resolved]
  - Dizziness [Not Recovered/Not Resolved]
  - Faeces discoloured [Unknown]

NARRATIVE: CASE EVENT DATE: 2018
